FAERS Safety Report 4595152-7 (Version None)
Quarter: 2005Q1

REPORT INFORMATION
  Report Type: 
  Country: None (occurrence: None)
  Receive Date: 20050224
  Receipt Date: 20050218
  Transmission Date: 20050727
  Serious: Yes (Hospitalization)
  Sender: FDA-Public Use
  Company Number: 05-02-0249

PATIENT
  Age: 81 Year
  Sex: Female

DRUGS (3)
  1. CLOZAPINE [Suspect]
     Indication: MAJOR DEPRESSION
     Dosage: 175-225MG QD ORAL
     Route: 048
     Dates: start: 20021001
  2. ATROVENT [Concomitant]
  3. ALBUTEROL SULFATE [Concomitant]

REACTIONS (2)
  - INFECTION [None]
  - URINARY TRACT INFECTION [None]
